FAERS Safety Report 10185971 (Version 1)
Quarter: 2014Q2

REPORT INFORMATION
  Report Type: Spontaneous
  Country: US (occurrence: None)
  Receive Date: 20140520
  Receipt Date: 20140520
  Transmission Date: 20141212
  Serious: Yes (Hospitalization)
  Sender: FDA-Public Use
  Company Number: None

PATIENT
  Age: 69 Year
  Sex: Female
  Weight: 90.2 kg

DRUGS (3)
  1. CYTARABINE [Suspect]
     Dosage: TWO INDUCTION CYCLES?
     Dates: end: 20131227
  2. DAUNORUBICIN [Suspect]
     Dosage: TWO INDUCTION CYCLES?
     Dates: end: 20131222
  3. G-CSF (FILGRASTIM, AMGEN) [Suspect]
     Dosage: ANC = 1.46M3 ON LAST DAY OF G-CSF?
     Dates: end: 20140120

REACTIONS (11)
  - Abdominal pain [None]
  - Diarrhoea [None]
  - Bacteroides test positive [None]
  - Decreased appetite [None]
  - Pain [None]
  - Neutrophil count decreased [None]
  - Gastrointestinal necrosis [None]
  - Gastrointestinal toxicity [None]
  - Immobile [None]
  - Gastrointestinal fungal infection [None]
  - Aspergillus infection [None]
